FAERS Safety Report 7001731-X (Version None)
Quarter: 2010Q3

REPORT INFORMATION
  Report Type: 
  Country: None (occurrence: None)
  Receive Date: 20100920
  Receipt Date: 20100916
  Transmission Date: 20110219
  Serious: Yes (Other)
  Sender: FDA-Public Use
  Company Number: GXKR2010DE10472

PATIENT
  Sex: Male

DRUGS (2)
  1. AMOXICLAV 1A PHARMA (NGX) [Suspect]
     Dosage: 1 DF, TID
     Route: 048
  2. AMOXICLAV 1A PHARMA (NGX) [Suspect]
     Dosage: 0.5 DF, BID

REACTIONS (5)
  - CARDIOVASCULAR DISORDER [None]
  - DISORIENTATION [None]
  - DIZZINESS [None]
  - DYSKINESIA [None]
  - HALLUCINATION [None]
